FAERS Safety Report 14127221 (Version 2)
Quarter: 2017Q4

REPORT INFORMATION
  Report Type: Spontaneous
  Country: US (occurrence: US)
  Receive Date: 20171026
  Receipt Date: 20171121
  Transmission Date: 20180321
  Serious: Yes (Death, Other)
  Sender: FDA-Public Use
  Company Number: US-SAREPTA THERAPEUTICS, INC-SRP-000093-2017

PATIENT
  Sex: Female

DRUGS (1)
  1. EXONDYS 51 [Suspect]
     Active Substance: ETEPLIRSEN
     Indication: DUCHENNE MUSCULAR DYSTROPHY
     Dosage: UNK
     Route: 042
     Dates: start: 20170821

REACTIONS (5)
  - Cardiac disorder [Fatal]
  - Brain injury [Fatal]
  - Mydriasis [Unknown]
  - Loss of consciousness [Unknown]
  - Nasopharyngitis [Unknown]
